FAERS Safety Report 5078147-9 (Version None)
Quarter: 2006Q3

REPORT INFORMATION
  Report Type: 
  Country: None (occurrence: None)
  Receive Date: 20060720
  Receipt Date: 20060302
  Transmission Date: 20061208
  Serious: Yes (Life-Threatening)
  Sender: FDA-Public Use
  Company Number: 2006MP000298

PATIENT
  Age: 76 Year
  Sex: Female

DRUGS (3)
  1. AGGRASTAT [Suspect]
     Indication: ACUTE CORONARY SYNDROME
     Dosage: 0.1 UG/KG; IV
     Route: 042
     Dates: start: 20060225, end: 20060226
  2. CLEXANE [Concomitant]
  3. TICLID [Concomitant]

REACTIONS (3)
  - HAEMOGLOBIN DECREASED [None]
  - MOUTH HAEMORRHAGE [None]
  - THROMBOCYTOPENIA [None]
